FAERS Safety Report 6378592-5 (Version None)
Quarter: 2009Q3

REPORT INFORMATION
  Report Type: 
  Country: None (occurrence: None)
  Receive Date: 20090928
  Receipt Date: 20090917
  Transmission Date: 20100115
  Serious: Yes (Hospitalization)
  Sender: FDA-Public Use
  Company Number: FR-TEVA-209699ISR

PATIENT
  Sex: Female

DRUGS (4)
  1. FLUOROURACIL [Suspect]
     Indication: GASTRIC CANCER
  2. FOLINIC ACID [Suspect]
     Indication: GASTRIC CANCER
  3. IRINOTECAN HCL [Suspect]
     Indication: GASTRIC CANCER
  4. GLICLAZIDE [Concomitant]

REACTIONS (1)
  - THROMBOSIS [None]
